FAERS Safety Report 19481861 (Version 2)
Quarter: 2021Q3

REPORT INFORMATION
  Report Type: Spontaneous
  Country: NL (occurrence: NL)
  Receive Date: 20210701
  Receipt Date: 20210705
  Transmission Date: 20211014
  Serious: Yes (Life-Threatening, Hospitalization, Other)
  Sender: FDA-Public Use
  Company Number: NL-ACCORD-229838

PATIENT
  Age: 71 Year
  Sex: Male
  Weight: 82.5 kg

DRUGS (4)
  1. ALGELDRATE [Concomitant]
     Active Substance: ALGELDRATE
     Dosage: SUSPENSION, 40/20 MG/ML (MILLIGRAMS PER MILLILITER)
  2. CAPECITABINE. [Suspect]
     Active Substance: CAPECITABINE
     Indication: RECTOSIGMOID CANCER METASTATIC
     Dosage: 2ND CYCLE CAPOX ON 01?04?2021
     Dates: start: 20210312, end: 20210401
  3. OXALIPLATIN. [Suspect]
     Active Substance: OXALIPLATIN
     Indication: RECTOSIGMOID CANCER METASTATIC
     Dosage: 2ND CYCLE CAPOX ON 01?04?2021
     Dates: start: 20210312, end: 20210401
  4. MACROGOL/MACROGOL STEARATE [Concomitant]
     Active Substance: POLYETHYLENE GLYCOLS
     Dosage: POWDER FOR ORAL SOLUTION

REACTIONS (1)
  - Pneumatosis intestinalis [Recovering/Resolving]

NARRATIVE: CASE EVENT DATE: 20210412
